FAERS Safety Report 4342854-3 (Version None)
Quarter: 2004Q2

REPORT INFORMATION
  Report Type: 
  Country: None (occurrence: None)
  Receive Date: 20040416
  Receipt Date: 20040407
  Transmission Date: 20050107
  Serious: Yes (Other)
  Sender: FDA-Public Use
  Company Number: US-JNJFOC-20040402059

PATIENT
  Age: 49 Year
  Sex: Female

DRUGS (3)
  1. DURAGESIC [Suspect]
     Indication: PAIN
     Dosage: 10 UG/HR, TRANSDERMAL
     Route: 062
     Dates: start: 19990101
  2. OXYCODONE HCL [Concomitant]
  3. WELLBUTRIN [Concomitant]

REACTIONS (4)
  - CONTUSION [None]
  - CONVULSION [None]
  - MEDICATION ERROR [None]
  - VOMITING [None]
